FAERS Safety Report 10342931 (Version 2)
Quarter: 2014Q3

REPORT INFORMATION
  Report Type: Spontaneous
  Country: CH (occurrence: None)
  Receive Date: 20140723
  Receipt Date: 20140916
  Transmission Date: 20150326
  Serious: Yes (Other)
  Sender: FDA-Public Use
  Company Number: 20140419

PATIENT
  Age: 72 Year
  Sex: Female

DRUGS (11)
  1. LASILIX (FUROSEMIDE) [Concomitant]
     Active Substance: FUROSEMIDE
  2. ALDACTONE [Concomitant]
     Active Substance: SPIRONOLACTONE
  3. FERINJECT [Suspect]
     Active Substance: FERRIC CARBOXYMALTOSE
     Indication: RECTAL HAEMORRHAGE
     Dates: start: 20140327, end: 20140327
  4. COUMDAIN (WARFARIN SODIUM) [Concomitant]
  5. IMOVANE [Concomitant]
     Active Substance: ZOPICLONE
  6. LEVOTHYROX (LEVOTHYROXINE SODIUM) [Concomitant]
     Active Substance: LEVOTHYROXINE SODIUM
  7. FERINJECT [Suspect]
     Active Substance: FERRIC CARBOXYMALTOSE
     Indication: ANAEMIA
     Dates: start: 20140327, end: 20140327
  8. PREVISCAN (FLUINDIONE) [Concomitant]
     Active Substance: FLUINDIONE
  9. TIORFAN (ACETORPHAN, RACECADOTRIL) [Concomitant]
  10. QUESTRAN (COLESTRYAMINE) [Concomitant]
  11. FLECAINE 100 (FLECAINIDE ACETATE) [Concomitant]

REACTIONS (2)
  - Wrong technique in drug usage process [None]
  - Bundle branch block left [None]

NARRATIVE: CASE EVENT DATE: 20140327
